FAERS Safety Report 8823297 (Version 1)
Quarter: 2012Q4

REPORT INFORMATION
  Report Type: 
  Country: US (occurrence: US)
  Receive Date: 20121003
  Receipt Date: 20121003
  Transmission Date: 20130627
  Serious: Yes (Hospitalization)
  Sender: FDA-Public Use
  Company Number: US-ASTRAZENECA-2012SE74077

PATIENT
  Age: 68 Year
  Sex: Female
  Weight: 172 kg

DRUGS (12)
  1. PULMICORT [Suspect]
     Route: 055
  2. ADVAIR [Suspect]
     Indication: CHRONIC OBSTRUCTIVE PULMONARY DISEASE
     Dosage: 250/50 MG
     Route: 065
  3. NEURONTIN [Suspect]
     Indication: PARAESTHESIA
     Route: 065
     Dates: start: 2008, end: 2012
  4. NEURONTIN [Suspect]
     Indication: SYNOVIAL CYST
     Route: 065
     Dates: start: 2008, end: 2012
  5. NEURONTIN [Suspect]
     Indication: PARAESTHESIA
     Dosage: 600 MG FOUR TO FIVE TIMES A DAY
     Route: 065
  6. NEURONTIN [Suspect]
     Indication: SYNOVIAL CYST
     Dosage: 600 MG FOUR TO FIVE TIMES A DAY
     Route: 065
  7. NEURONTIN [Suspect]
     Indication: PARAESTHESIA
     Route: 065
     Dates: start: 2012
  8. NEURONTIN [Suspect]
     Indication: SYNOVIAL CYST
     Route: 065
     Dates: start: 2012
  9. SINGULAIR [Suspect]
     Indication: CHRONIC OBSTRUCTIVE PULMONARY DISEASE
     Route: 065
  10. SPIRIVA [Suspect]
     Indication: CHRONIC OBSTRUCTIVE PULMONARY DISEASE
     Route: 065
  11. LANSOPRAZOLE [Concomitant]
     Indication: GASTROOESOPHAGEAL REFLUX DISEASE
  12. NAPROXEN [Concomitant]
     Indication: OSTEOPOROSIS

REACTIONS (14)
  - Overdose [Unknown]
  - Asthma [Unknown]
  - Herpes zoster [Not Recovered/Not Resolved]
  - Pruritus [Unknown]
  - Erythema [Unknown]
  - Nervousness [Unknown]
  - Heart rate increased [Unknown]
  - Chronic obstructive pulmonary disease [Unknown]
  - Paraesthesia [Unknown]
  - Synovial cyst [Unknown]
  - Osteoarthritis [Unknown]
  - Osteoporosis [Unknown]
  - Nerve injury [Unknown]
  - Gastrooesophageal reflux disease [Unknown]
